FAERS Safety Report 9319696 (Version 1)
Quarter: 2013Q1

REPORT INFORMATION
  Report Type: Spontaneous
  Country: US (occurrence: None)
  Receive Date: 20121210
  Receipt Date: 20121210
  Transmission Date: 20140127
  Serious: Yes (Other)
  Sender: FDA-Public Use
  Company Number: US-DEXPHARM-20121732

PATIENT
  Sex: Female
  Weight: 71.2 kg

DRUGS (16)
  1. OMEPRAZOLE [Suspect]
     Indication: GASTROOESOPHAGEAL REFLUX DISEASE
     Route: 048
     Dates: start: 20121018, end: 20121102
  2. OMEPRAZOLE [Suspect]
     Indication: HERNIA
     Route: 048
     Dates: start: 20121018, end: 20121102
  3. PRAVASTATIN [Concomitant]
  4. ISOSORBIDE [Concomitant]
  5. AMLODIPINE [Concomitant]
  6. OMEPRAZOLE [Suspect]
     Indication: GASTROOESOPHAGEAL REFLUX DISEASE
     Route: 048
     Dates: start: 20111102, end: 20121102
  7. OMEPRAZOLE [Suspect]
     Indication: HERNIA
     Route: 048
     Dates: start: 20111102, end: 20121102
  8. OMEPRAZOLE [Suspect]
     Indication: GASTRIC ULCER
     Route: 048
     Dates: start: 20111102, end: 20121102
  9. OMEPRAZOLE [Suspect]
     Indication: GASTROOESOPHAGEAL REFLUX DISEASE
     Route: 048
     Dates: start: 20111115, end: 20121114
  10. OMEPRAZOLE [Suspect]
     Indication: HERNIA
     Route: 048
     Dates: start: 20111115, end: 20121114
  11. OMEPRAZOLE [Suspect]
     Indication: GASTROOESOPHAGEAL REFLUX DISEASE
     Route: 048
     Dates: start: 20111115, end: 20121114
  12. OMEPRAZOLE [Suspect]
     Indication: HERNIA
     Route: 048
     Dates: start: 20111115, end: 20121114
  13. OMEPRAZOLE [Suspect]
     Indication: GASTRIC ULCER
     Route: 048
     Dates: start: 20111115, end: 20121114
  14. OMEPRAZOLE [Suspect]
     Indication: GASTRIC ULCER
     Dosage: ONE TABLET WITHIN TWO DAYS; 40 MG.
     Route: 048
     Dates: start: 20121018, end: 20121102
  15. OMEPRAZOLE [Suspect]
     Indication: GASTRIC ULCER
     Route: 048
     Dates: start: 20111115, end: 20121114
  16. SPIRIVA [Suspect]

REACTIONS (9)
  - Abdominal distension [None]
  - Dizziness [None]
  - Vomiting [None]
  - Diarrhoea [None]
  - Nausea [None]
  - Vertigo [None]
  - Mobility decreased [None]
  - Loss of consciousness [None]
  - Urinary tract infection [None]
